FAERS Safety Report 18566692 (Version 1)
Quarter: 2020Q4

REPORT INFORMATION
  Report Type: Spontaneous
  Country: CZ (occurrence: CZ)
  Receive Date: 20201201
  Receipt Date: 20201201
  Transmission Date: 20210114
  Serious: Yes (Life-Threatening, Other)
  Sender: FDA-Public Use
  Company Number: CZ-BAUSCH-BL-2020-034563

PATIENT
  Age: 60 Year
  Sex: Male

DRUGS (5)
  1. PIPERACILLIN/TAZOBACTAM [Suspect]
     Active Substance: PIPERACILLIN SODIUM\TAZOBACTAM SODIUM
     Indication: CORYNEBACTERIUM INFECTION
     Route: 042
  2. OXACILLIN [Concomitant]
     Active Substance: OXACILLIN SODIUM
     Indication: EVIDENCE BASED TREATMENT
     Route: 042
  3. ACITRETIN. [Concomitant]
     Active Substance: ACITRETIN
     Indication: KERATOSIS FOLLICULAR
     Route: 048
  4. HYDROCORTISONE. [Suspect]
     Active Substance: HYDROCORTISONE
     Indication: KERATOSIS FOLLICULAR
     Dosage: 200 MG FOR SIX DAYS
     Route: 030
  5. ACICLOVIR [Suspect]
     Active Substance: ACYCLOVIR
     Indication: HERPES VIRUS INFECTION
     Route: 065

REACTIONS (2)
  - Drug resistance [Unknown]
  - Therapy non-responder [Unknown]
